FAERS Safety Report 16076020 (Version 4)
Quarter: 2024Q4

REPORT INFORMATION
  Report Type: Other
  Country: IT (occurrence: IT)
  Receive Date: 20190315
  Receipt Date: 20241025
  Transmission Date: 20250114
  Serious: Yes (Death, Other)
  Sender: MACLEODS
  Company Number: None

PATIENT

DRUGS (43)
  1. LEVOFLOXACIN [Suspect]
     Active Substance: LEVOFLOXACIN
     Indication: Pneumonia
     Dosage: 500 MILLIGRAM, QD  (DAILY DOSE)
     Route: 048
     Dates: start: 20021004, end: 20021019
  2. PANTOPRAZOLE [Suspect]
     Active Substance: PANTOPRAZOLE
     Indication: Prophylaxis
     Dosage: UNK
     Route: 048
     Dates: start: 20021009, end: 20021106
  3. OMEPRAZOLE [Suspect]
     Active Substance: OMEPRAZOLE
     Indication: Product used for unknown indication
     Dosage: 20 MILLIGRAM, QD
     Route: 048
     Dates: start: 20020927, end: 20021103
  4. HALOPERIDOL [Suspect]
     Active Substance: HALOPERIDOL
     Indication: Agitation
     Dosage: UNK
     Route: 065
     Dates: start: 20021009, end: 20021104
  5. HALOPERIDOL [Suspect]
     Active Substance: HALOPERIDOL
     Indication: Hallucination
  6. ITRACONAZOLE [Suspect]
     Active Substance: ITRACONAZOLE
     Indication: Oral candidiasis
     Dosage: 100 MILLIGRAM
     Route: 065
     Dates: start: 20021009, end: 20021106
  7. NYSTATIN [Suspect]
     Active Substance: NYSTATIN
     Indication: Oral candidiasis
     Dosage: 12 MILLILITER, QD (DAILY DOSE)
     Route: 065
     Dates: start: 20020927, end: 20021009
  8. NYSTATIN [Suspect]
     Active Substance: NYSTATIN
     Indication: Cystitis
     Dosage: MOST RECENT DSOE: 27/SEP/2002
     Route: 065
     Dates: start: 20020927, end: 20020927
  9. NYSTATIN [Suspect]
     Active Substance: NYSTATIN
     Indication: Cystitis
  10. RABEPRAZOLE [Suspect]
     Active Substance: RABEPRAZOLE
     Indication: Product used for unknown indication
     Dosage: UNK
     Route: 065
     Dates: start: 20020927, end: 20020927
  11. DIAZEPAM [Suspect]
     Active Substance: DIAZEPAM
     Indication: Hallucination
     Dosage: UNK
     Route: 065
     Dates: start: 20021009, end: 20021106
  12. DIAZEPAM [Suspect]
     Active Substance: DIAZEPAM
     Indication: Agitation
  13. AMOXICILLIN AND CLAVULANATE POTASSIUM [Suspect]
     Active Substance: AMOXICILLIN\CLAVULANATE POTASSIUM
     Indication: Pneumonia
     Dosage: 3600 MILLIGRAM, QD, 1200 MG, TID
     Route: 042
     Dates: start: 20021004, end: 20021019
  14. BETAMETHASONE [Suspect]
     Active Substance: BETAMETHASONE
     Indication: Product used for unknown indication
     Dosage: 8 MILLIGRAM
     Route: 042
     Dates: start: 20021106, end: 20021110
  15. BETAMETHASONE [Suspect]
     Active Substance: BETAMETHASONE
     Dosage: UNK
     Route: 065
     Dates: end: 20020927
  16. DIAZEPAM [Suspect]
     Active Substance: DIAZEPAM
     Indication: Agitation
     Dosage: UNK
     Route: 065
     Dates: start: 20021009, end: 20021106
  17. CEFACLOR [Suspect]
     Active Substance: CEFACLOR
     Indication: Cystitis
     Dosage: UNK
     Route: 065
     Dates: end: 20020927
  18. CEFACLOR [Suspect]
     Active Substance: CEFACLOR
     Indication: Oral candidiasis
     Dosage: UNK
     Route: 065
  19. CEFACLOR [Suspect]
     Active Substance: CEFACLOR
     Indication: Cystitis
  20. FUROSEMIDE [Suspect]
     Active Substance: FUROSEMIDE
     Indication: Oliguria
     Dosage: UNK
     Route: 042
     Dates: start: 20021027, end: 20021106
  21. FUROSEMIDE [Suspect]
     Active Substance: FUROSEMIDE
     Indication: Renal impairment
     Dosage: UNK
     Route: 048
     Dates: start: 20021004, end: 20021015
  22. CORTISONE ACETATE [Suspect]
     Active Substance: CORTISONE ACETATE
     Indication: Product used for unknown indication
     Dosage: 50 MILLIGRAM, QD, 25 MG, BID
     Route: 065
     Dates: start: 20020927, end: 20021103
  23. CALCITRIOL [Suspect]
     Active Substance: CALCITRIOL
     Indication: Product used for unknown indication
     Dosage: 0.5 MICROGRAM, QD, 0.5 MCG AT 08.00 HOURS
     Route: 065
     Dates: start: 20020927, end: 20021106
  24. FLUDROCORTISONE [Suspect]
     Active Substance: FLUDROCORTISONE
     Indication: Product used for unknown indication
     Dosage: UNK
     Route: 065
     Dates: start: 20020927, end: 20021024
  25. METOCLOPRAMIDE [Suspect]
     Active Substance: METOCLOPRAMIDE
     Indication: Product used for unknown indication
     Dosage: UNK
     Route: 065
     Dates: start: 20020927, end: 20020927
  26. CANRENOATE POTASSIUM [Suspect]
     Active Substance: CANRENOATE POTASSIUM
     Indication: Agitation
     Dosage: UNK
     Route: 048
     Dates: start: 20021004
  27. CALCIUM CARBONATE [Suspect]
     Active Substance: CALCIUM CARBONATE
     Indication: Agitation
     Dosage: 1 GRAM, QD
     Route: 065
     Dates: start: 20020927, end: 20020927
  28. CALCIUM CARBONATE [Suspect]
     Active Substance: CALCIUM CARBONATE
     Route: 048
     Dates: start: 20021004
  29. CANRENOIC ACID [Suspect]
     Active Substance: CANRENOIC ACID
     Indication: Renal impairment
     Dosage: UNK
     Route: 048
     Dates: start: 20021004, end: 20021015
  30. CANRENOIC ACID [Suspect]
     Active Substance: CANRENOIC ACID
     Dosage: UNK
     Route: 065
     Dates: start: 20021027
  31. CALCIUM GLUCONATE [Suspect]
     Active Substance: CALCIUM GLUCONATE
     Indication: Product used for unknown indication
     Dosage: 1 GRAM
     Route: 065
     Dates: start: 20021009, end: 20021110
  32. RIFAMYCIN [Concomitant]
     Active Substance: RIFAMYCIN
     Indication: Product used for unknown indication
     Dosage: UNK
     Route: 065
     Dates: start: 20021104, end: 20021106
  33. CALCIUM LACTATE GLUCONATE ANHYDROUS [Concomitant]
     Active Substance: CALCIUM LACTATE GLUCONATE ANHYDROUS
     Indication: Product used for unknown indication
     Dosage: UNK
     Route: 065
     Dates: start: 20020927
  34. PIPERACILLIN [Concomitant]
     Active Substance: PIPERACILLIN
     Indication: Product used for unknown indication
     Dosage: UNK
     Route: 065
     Dates: start: 20021102, end: 20021104
  35. HYDROCORTISONE HEMISUCCINATE ANHYDROUS [Concomitant]
     Active Substance: HYDROCORTISONE HEMISUCCINATE ANHYDROUS
     Indication: Product used for unknown indication
     Dosage: 200 MILLIGRAM
     Route: 042
     Dates: start: 20021103, end: 20021106
  36. MAGNESIUM HYDROXIDE [Concomitant]
     Active Substance: MAGNESIUM HYDROXIDE
     Indication: Product used for unknown indication
     Dosage: UNK
     Route: 065
     Dates: start: 20020927
  37. INSULIN NOS [Concomitant]
     Active Substance: INSULIN NOS
     Indication: Product used for unknown indication
     Dosage: UNK
     Route: 065
     Dates: start: 20021106, end: 20021110
  38. RANITIDINE [Concomitant]
     Active Substance: RANITIDINE
     Indication: Product used for unknown indication
     Dosage: UNK
     Route: 042
     Dates: start: 20021103, end: 20021110
  39. CHLORPHENIRAMINE MALEATE [Concomitant]
     Active Substance: CHLORPHENIRAMINE MALEATE
     Indication: Product used for unknown indication
     Dosage: UNK
     Route: 042
     Dates: start: 20021106, end: 20021110
  40. ALUMINUM HYDROXIDE [Concomitant]
     Active Substance: ALUMINUM HYDROXIDE
     Indication: Product used for unknown indication
     Dosage: UNK
     Route: 048
     Dates: start: 20020927, end: 20021106
  41. GENTAMICIN [Concomitant]
     Active Substance: GENTAMICIN
     Indication: Product used for unknown indication
     Dosage: UNK
     Route: 061
     Dates: start: 20021106, end: 20021110
  42. POVIDONE-IODINE [Concomitant]
     Active Substance: POVIDONE-IODINE
     Indication: Product used for unknown indication
     Dosage: UNK
     Route: 065
     Dates: start: 20021106, end: 20021110
  43. DEXTROSE [Concomitant]
     Active Substance: DEXTROSE MONOHYDRATE
     Indication: Product used for unknown indication
     Dosage: IV DRIP
     Route: 042
     Dates: start: 20021106, end: 20021110

REACTIONS (21)
  - Septic shock [Fatal]
  - Pyrexia [Fatal]
  - Skin lesion [Fatal]
  - Blister [Fatal]
  - Skin exfoliation [Fatal]
  - Skin infection [Fatal]
  - Mouth ulceration [Fatal]
  - Septic shock [Fatal]
  - Rash macular [Fatal]
  - Staphylococcal sepsis [Fatal]
  - Rash erythematous [Fatal]
  - Toxic epidermal necrolysis [Fatal]
  - Rash [Fatal]
  - Chronic hepatitis [Unknown]
  - Polyglandular disorder [Unknown]
  - Anaemia folate deficiency [Unknown]
  - Candida infection [Unknown]
  - Endocrine disorder [Unknown]
  - Hypoparathyroidism [Unknown]
  - Vitiligo [Unknown]
  - Cystitis [Unknown]

NARRATIVE: CASE EVENT DATE: 20021001
